APPROVED DRUG PRODUCT: BIMATOPROST
Active Ingredient: BIMATOPROST
Strength: 0.01%
Dosage Form/Route: SOLUTION/DROPS;OPHTHALMIC
Application: A218196 | Product #001 | TE Code: AB
Applicant: MANKIND PHARMA LTD
Approved: Mar 17, 2025 | RLD: No | RS: No | Type: RX